FAERS Safety Report 4755168-4 (Version None)
Quarter: 2005Q3

REPORT INFORMATION
  Report Type: 
  Country: None (occurrence: None)
  Receive Date: 20050829
  Receipt Date: 20050819
  Transmission Date: 20060218
  Serious: Yes (Life-Threatening)
  Sender: FDA-Public Use
  Company Number: US-JNJFOC-20050805375

PATIENT
  Sex: Female
  Weight: 60.78 kg

DRUGS (8)
  1. INFLIXIMAB [Suspect]
     Route: 042
  2. INFLIXIMAB [Suspect]
     Route: 042
  3. INFLIXIMAB [Suspect]
     Route: 042
  4. INFLIXIMAB [Suspect]
     Indication: CROHN'S DISEASE
     Route: 042
  5. AZATHIOPRINE [Concomitant]
     Indication: CROHN'S DISEASE
  6. ANTIBIOTICS [Concomitant]
     Indication: CROHN'S DISEASE
  7. NARCOTIC ANALGESICS [Concomitant]
     Indication: CROHN'S DISEASE
  8. PREDNISONE TAB [Concomitant]
     Indication: CROHN'S DISEASE

REACTIONS (2)
  - METASTASES TO SPINE [None]
  - RECTAL CANCER METASTATIC [None]
